FAERS Safety Report 7017968-X (Version None)
Quarter: 2010Q3

REPORT INFORMATION
  Report Type: 
  Country: None (occurrence: None)
  Receive Date: 20100927
  Receipt Date: 20100927
  Transmission Date: 20110219
  Serious: Yes (Hospitalization)
  Sender: FDA-Public Use
  Company Number: None

PATIENT
  Age: 67 Year
  Sex: Male
  Weight: 79 kg

DRUGS (2)
  1. INSULIN [Suspect]
     Indication: DIABETES MELLITUS
     Dosage: 40 UNITS EVERY DAY SQ
     Route: 058
     Dates: start: 20091106
  2. INSULIN [Suspect]
     Indication: DIABETES MELLITUS
     Dosage: 10 UNITS EVERY DAY SQ
     Route: 058
     Dates: start: 20100611

REACTIONS (2)
  - DRUG ADMINISTRATION ERROR [None]
  - HYPOGLYCAEMIA [None]
